FAERS Safety Report 7678438-9 (Version None)
Quarter: 2011Q3

REPORT INFORMATION
  Report Type: 
  Country: None (occurrence: None)
  Receive Date: 20110811
  Receipt Date: 20110727
  Transmission Date: 20111222
  Serious: No
  Sender: FDA-Public Use
  Company Number: US-B.I. PHARMACEUTICALS,INC./RIDGEFIELD-2011-BP-11982BP

PATIENT
  Age: 82 Year
  Sex: Female
  Weight: 71.21 kg

DRUGS (1)
  1. PRADAXA [Suspect]
     Dates: start: 20110318, end: 20110324

REACTIONS (4)
  - GASTROOESOPHAGEAL REFLUX DISEASE [None]
  - DYSPHAGIA [None]
  - DYSPEPSIA [None]
  - CHEST DISCOMFORT [None]
